FAERS Safety Report 5809068-9 (Version None)
Quarter: 2008Q3

REPORT INFORMATION
  Report Type: 
  Country: None (occurrence: None)
  Receive Date: 20080711
  Receipt Date: 20080711
  Transmission Date: 20090109
  Serious: No
  Sender: FDA-Public Use
  Company Number: None

PATIENT
  Age: 59 Year
  Sex: Female
  Weight: 58.0604 kg

DRUGS (1)
  1. CIPROFLOXACIN [Suspect]
     Indication: SINUSITIS
     Dosage: 1 TABLET TWICE DAILY PO
     Route: 048
     Dates: start: 20080605, end: 20080609

REACTIONS (3)
  - ARTHRALGIA [None]
  - IMPAIRED WORK ABILITY [None]
  - RASH GENERALISED [None]
